FAERS Safety Report 25087991 (Version 1)
Quarter: 2025Q1

REPORT INFORMATION
  Report Type: Spontaneous
  Country: DE (occurrence: DE)
  Receive Date: 20250318
  Receipt Date: 20250318
  Transmission Date: 20250409
  Serious: Yes (Other)
  Sender: BAUSCH AND LOMB
  Company Number: DE-BAUSCH-BL-2025-003590

PATIENT
  Age: 54 Year
  Sex: Male

DRUGS (17)
  1. FLUCYTOSINE [Suspect]
     Active Substance: FLUCYTOSINE
     Indication: Candida infection
     Route: 065
  2. ACYCLOVIR [Suspect]
     Active Substance: ACYCLOVIR
     Indication: Anti-infective therapy
     Route: 065
  3. VANCOMYCIN [Suspect]
     Active Substance: VANCOMYCIN
     Indication: Anti-infective therapy
     Route: 065
  4. MEROPENEM [Suspect]
     Active Substance: MEROPENEM
     Indication: Anti-infective therapy
     Route: 065
  5. AMPICILLIN [Suspect]
     Active Substance: AMPICILLIN
     Indication: Anti-infective therapy
     Route: 065
  6. AMPHOTERICIN B [Concomitant]
     Active Substance: AMPHOTERICIN B
     Indication: Candida infection
  7. RITUXIMAB [Concomitant]
     Active Substance: RITUXIMAB
     Indication: Mantle cell lymphoma
  8. CYCLOPHOSPHAMIDE [Concomitant]
     Active Substance: CYCLOPHOSPHAMIDE
     Indication: Mantle cell lymphoma
  9. DOXORUBICIN [Concomitant]
     Active Substance: DOXORUBICIN
     Indication: Mantle cell lymphoma
  10. VINCRISTINE [Concomitant]
     Active Substance: VINCRISTINE
     Indication: Mantle cell lymphoma
  11. PREDNISONE [Concomitant]
     Active Substance: PREDNISONE
     Indication: Mantle cell lymphoma
  12. DEXAMETHASONE [Concomitant]
     Active Substance: DEXAMETHASONE
     Indication: Mantle cell lymphoma
  13. CYTARABINE [Concomitant]
     Active Substance: CYTARABINE
     Indication: Mantle cell lymphoma
  14. CISPLATIN [Concomitant]
     Active Substance: CISPLATIN
     Indication: Mantle cell lymphoma
  15. AMPICILLIN [Concomitant]
     Active Substance: AMPICILLIN
     Indication: Listeriosis
  16. TRIMETHOPRIM [Concomitant]
     Active Substance: TRIMETHOPRIM
     Indication: Listeriosis
  17. SULFAMETHOXAZOLE [Concomitant]
     Active Substance: SULFAMETHOXAZOLE
     Indication: Listeriosis

REACTIONS (3)
  - Cholecystitis acute [Recovered/Resolved]
  - Pancytopenia [Recovered/Resolved]
  - Therapy non-responder [Unknown]
